FAERS Safety Report 7289109-5 (Version None)
Quarter: 2011Q1

REPORT INFORMATION
  Report Type: 
  Country: None (occurrence: None)
  Receive Date: 20110201
  Receipt Date: 20110117
  Transmission Date: 20110831
  Serious: Yes (Other)
  Sender: FDA-Public Use
  Company Number: 2010-2554

PATIENT
  Sex: Male

DRUGS (1)
  1. DYSPORT [Suspect]
     Indication: HEREDITARY SPASTIC PARAPLEGIA
     Dosage: 1500 UNITS (1500 UNITS,SINGLE CYCLE) INTRAMUSCULAR
     Route: 030

REACTIONS (2)
  - FATIGUE [None]
  - SOMNOLENCE [None]
